FAERS Safety Report 11159554 (Version 1)
Quarter: 2015Q2

REPORT INFORMATION
  Report Type: Spontaneous
  Country: IN (occurrence: None)
  Receive Date: 20150602
  Receipt Date: 20150602
  Transmission Date: 20150821
  Serious: Yes (Other)
  Sender: FDA-Public Use
  Company Number: None

PATIENT
  Age: 26 Year
  Sex: Male
  Weight: 74.84 kg

DRUGS (4)
  1. MODVIGIL [Suspect]
     Active Substance: MODAFINIL
     Indication: SOMNOLENCE
     Dosage: 1 PILL  ONCE TAKEN BY MOUTH
     Route: 048
  2. CANNABIS [Concomitant]
     Active Substance: CANNABIS SATIVA SUBSP. INDICA TOP
  3. FISH OIL [Concomitant]
     Active Substance: FISH OIL
  4. RHODIOLA [Concomitant]
     Active Substance: HERBALS

REACTIONS (1)
  - Headache [None]

NARRATIVE: CASE EVENT DATE: 20150601
